FAERS Safety Report 25310290 (Version 1)
Quarter: 2025Q2

REPORT INFORMATION
  Report Type: Spontaneous
  Country: CN (occurrence: CN)
  Receive Date: 20250514
  Receipt Date: 20250514
  Transmission Date: 20250716
  Serious: Yes (Other)
  Sender: ROCHE
  Company Number: CN-CHEPLA-2025005787

PATIENT
  Age: 60 Year
  Sex: Male
  Weight: 81 kg

DRUGS (2)
  1. BEVACIZUMAB [Suspect]
     Active Substance: BEVACIZUMAB
     Indication: Rectal cancer
     Dosage: 400MG [QD] D1; APPROVAL NO. GYZZ S20200013
     Route: 042
     Dates: start: 20250214, end: 20250214
  2. XELODA [Suspect]
     Active Substance: CAPECITABINE
     Indication: Rectal cancer
     Dosage: 3 TABLETS [BID]; APPROVAL NO. GYZZ H20073024; 1.5G BID D1-14
     Route: 048
     Dates: start: 20250213, end: 20250213

REACTIONS (1)
  - Thrombocytopenia [Recovering/Resolving]

NARRATIVE: CASE EVENT DATE: 20250312
